FAERS Safety Report 4548536-7 (Version None)
Quarter: 2005Q1

REPORT INFORMATION
  Report Type: 
  Country: None (occurrence: None)
  Receive Date: 20050110
  Receipt Date: 20041214
  Transmission Date: 20050727
  Serious: Yes (Other)
  Sender: FDA-Public Use
  Company Number: GB-BRISTOL-MYERS SQUIBB COMPANY-12793642

PATIENT
  Age: 43 Year
  Sex: Male

DRUGS (3)
  1. SUSTIVA [Suspect]
  2. VIREAD [Suspect]
  3. EMTRIVA [Suspect]

REACTIONS (5)
  - ERYTHEMA MULTIFORME [None]
  - PRURITUS [None]
  - RASH [None]
  - RASH PSORIAFORM [None]
  - SKIN LESION [None]
